FAERS Safety Report 7269293-X (Version None)
Quarter: 2011Q1

REPORT INFORMATION
  Report Type: 
  Country: None (occurrence: None)
  Receive Date: 20110125
  Receipt Date: 20110112
  Transmission Date: 20110831
  Serious: Yes (Other)
  Sender: FDA-Public Use
  Company Number: 2011SP001540

PATIENT
  Sex: Male

DRUGS (1)
  1. PEGATRON (PEGYLATED INTERFERON ALFA-2B W/ RIBAVIRIN) [Suspect]
     Indication: HEPATITIS C
     Dates: start: 20090710, end: 20100611

REACTIONS (5)
  - INJECTION SITE INFLAMMATION [None]
  - INJECTION SITE ULCER [None]
  - STAPHYLOCOCCUS TEST POSITIVE [None]
  - INJECTION SITE REACTION [None]
  - IMPAIRED HEALING [None]
